FAERS Safety Report 8444750-9 (Version None)
Quarter: 2012Q2

REPORT INFORMATION
  Report Type: 
  Country: None (occurrence: None)
  Receive Date: 20120611
  Receipt Date: 20120526
  Transmission Date: 20120825
  Serious: Yes (Life-Threatening, Hospitalization)
  Sender: FDA-Public Use
  Company Number: 2012AP001613

PATIENT
  Age: 26 Year
  Sex: Male

DRUGS (4)
  1. LEVOFLOXACIN [Suspect]
     Indication: COLITIS
  2. LEVOFLOXACIN [Suspect]
     Indication: OFF LABEL USE
  3. METRONIDAZOLE [Suspect]
     Indication: COLITIS
  4. CIPROFLOXACIN [Suspect]
     Indication: COLITIS

REACTIONS (11)
  - INTENTIONAL SELF-INJURY [None]
  - AUTOMATISM, COMMAND [None]
  - DEPRESSION [None]
  - OFF LABEL USE [None]
  - MEMORY IMPAIRMENT [None]
  - BLUNTED AFFECT [None]
  - ELECTROCUTION [None]
  - DISORIENTATION [None]
  - SUICIDE ATTEMPT [None]
  - COGNITIVE DISORDER [None]
  - SLOW SPEECH [None]
